FAERS Safety Report 10092525 (Version 1)
Quarter: 2014Q2

REPORT INFORMATION
  Report Type: Spontaneous
  Country: US (occurrence: US)
  Receive Date: 20140421
  Receipt Date: 20140421
  Transmission Date: 20141212
  Serious: No
  Sender: FDA-Public Use
  Company Number: US-SANOFI-AVENTIS-2013SA034512

PATIENT
  Sex: 0

DRUGS (1)
  1. ALLEGRA [Suspect]
     Route: 048

REACTIONS (10)
  - Adverse reaction [Unknown]
  - Malaise [Unknown]
  - Eating disorder [Unknown]
  - Pharyngeal oedema [Unknown]
  - Respiratory rate decreased [Unknown]
  - Rhinorrhoea [Unknown]
  - Nasal congestion [Unknown]
  - Dysgeusia [Unknown]
  - Parosmia [Unknown]
  - Immune system disorder [Unknown]
